FAERS Safety Report 24798886 (Version 1)
Quarter: 2025Q1

REPORT INFORMATION
  Report Type: Report from Study
  Country: US (occurrence: US)
  Receive Date: 20250102
  Receipt Date: 20250102
  Transmission Date: 20250408
  Serious: Yes (Hospitalization, Other)
  Sender: GILEAD
  Company Number: US-GILEAD-2024-0698071

PATIENT
  Age: 14 Year
  Sex: Female

DRUGS (23)
  1. AMBRISENTAN [Suspect]
     Active Substance: AMBRISENTAN
     Indication: Product used for unknown indication
     Dosage: 10 MG, QD
     Route: 048
     Dates: end: 201608
  2. AMBRISENTAN [Suspect]
     Active Substance: AMBRISENTAN
     Dosage: 10 MG, QD
     Route: 048
     Dates: start: 202005
  3. REMODULIN [Suspect]
     Active Substance: TREPROSTINIL
     Indication: Pulmonary arterial hypertension
     Route: 042
     Dates: start: 202303, end: 20230313
  4. REMODULIN [Suspect]
     Active Substance: TREPROSTINIL
     Route: 058
  5. REMODULIN [Suspect]
     Active Substance: TREPROSTINIL
     Route: 058
     Dates: start: 2023, end: 202409
  6. REMODULIN [Suspect]
     Active Substance: TREPROSTINIL
     Route: 058
  7. REMODULIN [Suspect]
     Active Substance: TREPROSTINIL
     Route: 058
     Dates: start: 2023
  8. REMODULIN [Suspect]
     Active Substance: TREPROSTINIL
     Route: 058
     Dates: start: 20230313, end: 20240909
  9. TYVASO [Suspect]
     Active Substance: TREPROSTINIL
     Indication: Pulmonary arterial hypertension
     Dosage: 54 UG, QID
     Route: 055
  10. TYVASO [Suspect]
     Active Substance: TREPROSTINIL
     Dosage: 18 UG, QID
     Route: 055
  11. TYVASO [Suspect]
     Active Substance: TREPROSTINIL
     Route: 055
     Dates: start: 20160127, end: 202303
  12. LECITHIN\POLOXAMER 407 [Suspect]
     Active Substance: LECITHIN\POLOXAMER 407
     Indication: Infusion site pain
     Route: 065
  13. TRACLEER [Concomitant]
     Active Substance: BOSENTAN
  14. CIALIS [Concomitant]
     Active Substance: TADALAFIL
  15. TYLENOL [Concomitant]
     Active Substance: ACETAMINOPHEN
  16. VITAMIN D3 [Concomitant]
     Active Substance: CHOLECALCIFEROL
  17. FERROUS SULFATE [Concomitant]
     Active Substance: FERROUS SULFATE
  18. LEVOFLOXACIN [Concomitant]
     Active Substance: LEVOFLOXACIN
  19. OXYGEN [Concomitant]
     Active Substance: OXYGEN
  20. AYGESTIN [Concomitant]
     Active Substance: NORETHINDRONE ACETATE
  21. SELEXIPAG [Concomitant]
     Active Substance: SELEXIPAG
  22. POLYETHYLENE GLYCOLS [Concomitant]
     Active Substance: POLYETHYLENE GLYCOLS
  23. SILDENAFIL [Concomitant]
     Active Substance: SILDENAFIL

REACTIONS (24)
  - Pulmonary hypertension [Not Recovered/Not Resolved]
  - Troponin increased [Recovered/Resolved]
  - Blood loss anaemia [Unknown]
  - Heavy menstrual bleeding [Recovering/Resolving]
  - Epistaxis [Unknown]
  - Headache [Recovered/Resolved]
  - Infusion site erythema [Recovered/Resolved]
  - Infusion site pain [Recovered/Resolved]
  - Infusion site pruritus [Recovered/Resolved]
  - Flushing [Recovered/Resolved]
  - Abdominal pain upper [Unknown]
  - Heart rate increased [Not Recovered/Not Resolved]
  - Therapy non-responder [Unknown]
  - Arthralgia [Recovering/Resolving]
  - Back pain [Recovering/Resolving]
  - Decreased appetite [Not Recovered/Not Resolved]
  - Irritability [Not Recovered/Not Resolved]
  - Asthenia [Recovering/Resolving]
  - Lung opacity [Unknown]
  - Soft tissue disorder [Unknown]
  - Device occlusion [Unknown]
  - Device wireless communication issue [Unknown]
  - Device occlusion [Unknown]
  - Product use issue [Unknown]
